FAERS Safety Report 9969420 (Version 2)
Quarter: 2014Q1

REPORT INFORMATION
  Report Type: Report from Study
  Country: US (occurrence: US)
  Receive Date: 20140306
  Receipt Date: 20140306
  Transmission Date: 20141002
  Serious: Yes (Death, Hospitalization)
  Sender: FDA-Public Use
  Company Number: US-ROCHE-1285402

PATIENT
  Age: 69 Year
  Sex: Female
  Weight: 49.9 kg

DRUGS (11)
  1. BEVACIZUMAB [Suspect]
     Indication: COLORECTAL CANCER
     Route: 042
     Dates: start: 20130729, end: 20130729
  2. FLUOROURACIL [Suspect]
     Indication: COLORECTAL CANCER
     Route: 042
     Dates: start: 20130729, end: 20130729
  3. FLUOROURACIL [Suspect]
     Route: 042
     Dates: start: 20130729, end: 20130731
  4. OXALIPLATIN [Suspect]
     Indication: COLORECTAL CANCER
     Route: 042
     Dates: start: 20130729, end: 20130729
  5. FUSILEV [Suspect]
     Indication: COLORECTAL CANCER
     Route: 042
     Dates: start: 20130729, end: 20130729
  6. ACYCLOVIR [Concomitant]
     Indication: MUCOSAL INFLAMMATION
     Route: 048
     Dates: start: 20130805
  7. DIFLUCAN [Concomitant]
     Indication: MUCOSAL INFLAMMATION
     Route: 048
     Dates: start: 20130805
  8. ZOFRAN [Concomitant]
     Indication: NAUSEA
     Route: 042
     Dates: start: 20130801
  9. DECADRON [Concomitant]
     Indication: NAUSEA
     Route: 042
     Dates: start: 20130801
  10. L-GLUTAMINE [Concomitant]
     Indication: MUCOSAL INFLAMMATION
     Route: 048
     Dates: start: 20130802
  11. IMODIUM A-D [Concomitant]
     Indication: DIARRHOEA
     Dosage: ONE DOSE
     Route: 048
     Dates: start: 20130801

REACTIONS (3)
  - Febrile neutropenia [Fatal]
  - Thrombocytopenia [Fatal]
  - Respiratory failure [Fatal]
